FAERS Safety Report 13468589 (Version 2)
Quarter: 2017Q2

REPORT INFORMATION
  Report Type: Spontaneous
  Country: IT (occurrence: IT)
  Receive Date: 20170421
  Receipt Date: 20170425
  Transmission Date: 20170830
  Serious: Yes (Hospitalization, Other)
  Sender: FDA-Public Use
  Company Number: IT-MUNDIPHARMA DS AND PHARMACOVIGILANCE-GBR-2017-0044701

PATIENT
  Age: 61 Year
  Sex: Female

DRUGS (5)
  1. BORTEZOMIB [Concomitant]
     Active Substance: BORTEZOMIB
     Indication: PLASMA CELL MYELOMA
  2. DEXAMETHASONE. [Concomitant]
     Active Substance: DEXAMETHASONE
     Indication: PLASMA CELL MYELOMA
     Dosage: UNK
  3. OXYCODONE HYDROCHLORIDE / NALOXONE HYDROCHLORIDE [Suspect]
     Active Substance: NALOXONE HYDROCHLORIDE\OXYCODONE HYDROCHLORIDE
     Indication: PAIN
     Route: 065
  4. ACICLOVIR [Concomitant]
     Active Substance: ACYCLOVIR
     Indication: PRODUCT USED FOR UNKNOWN INDICATION
  5. THALIDOMIDE [Interacting]
     Active Substance: THALIDOMIDE
     Indication: PLASMA CELL MYELOMA
     Route: 065

REACTIONS (3)
  - Drug interaction [Unknown]
  - Pyrexia [Unknown]
  - Varicella zoster virus infection [Recovered/Resolved]
